FAERS Safety Report 5858995-5 (Version None)
Quarter: 2008Q3

REPORT INFORMATION
  Report Type: 
  Country: None (occurrence: None)
  Receive Date: 20080825
  Receipt Date: 20070403
  Transmission Date: 20090109
  Serious: Yes (Other)
  Sender: FDA-Public Use
  Company Number: PAR_1484_2007

PATIENT

DRUGS (1)
  1. MEGACE ES (NOT SPECIFIED) [Suspect]

REACTIONS (1)
  - DEEP VEIN THROMBOSIS [None]
